FAERS Safety Report 18113954 (Version 2)
Quarter: 2020Q3

REPORT INFORMATION
  Report Type: Spontaneous
  Country: US (occurrence: US)
  Receive Date: 20200805
  Receipt Date: 20200824
  Transmission Date: 20201103
  Serious: No
  Sender: FDA-Public Use
  Company Number: US-PFIZER INC-2020296410

PATIENT
  Age: 62 Year
  Sex: Female

DRUGS (13)
  1. METRONIDAZOLE. [Concomitant]
     Active Substance: METRONIDAZOLE
     Dosage: UNK(METRONIDAZOLE 0.75 % CREAM(GM))
  2. CALCIUM [Concomitant]
     Active Substance: CALCIUM
     Dosage: UNK(CALCIUM 500(1250) TABLET)
  3. MIRALAX [Concomitant]
     Active Substance: POLYETHYLENE GLYCOL 3350
     Dosage: UNK(MIRALAX 17G/DOSE POWDER)
  4. IBRANCE [Suspect]
     Active Substance: PALBOCICLIB
     Indication: BREAST CANCER FEMALE
     Dosage: 125 MG, CYCLIC (1 DAILY OR 21 DAYS)
     Route: 048
     Dates: start: 20200721
  5. LEVOTHYROXINE SODIUM. [Concomitant]
     Active Substance: LEVOTHYROXINE SODIUM
     Dosage: UNK(LEVOTHYROXINE SODIUM 100 % POWDER)
  6. VITAMIN D [COLECALCIFEROL] [Concomitant]
     Active Substance: CHOLECALCIFEROL
     Dosage: UNK(VITAMIN D?400 10 MCG TABLET)
  7. FASLODEX [Concomitant]
     Active Substance: FULVESTRANT
     Dosage: UNK(FASLODEX 250 MG/5ML SYRINGE)
  8. BUSPIRONE HCL [Concomitant]
     Active Substance: BUSPIRONE HYDROCHLORIDE
     Dosage: UNK(BUSPIRONE HCL 100 % POWDER)
  9. MELATONIN [Concomitant]
     Active Substance: MELATONIN
     Dosage: UNK
  10. IBUPROFEN. [Concomitant]
     Active Substance: IBUPROFEN
     Dosage: UNK(IBUPROFEN 100 % POWDER)
  11. POLYMYXIN B SULFATE AND TRIMETHOPRIM [POLYMYXIN B SULFATE;TRIMETHOPRIM [Concomitant]
     Dosage: UNK
  12. TAGAMET [Concomitant]
     Active Substance: CIMETIDINE
     Dosage: UNK(TAGAMET HB 200 MG TABLET)
  13. DEPAKOTE [Concomitant]
     Active Substance: DIVALPROEX SODIUM
     Dosage: UNK(DEPAKOTE 125 MG TABLET DR)

REACTIONS (2)
  - Diarrhoea [Recovering/Resolving]
  - Nausea [Unknown]

NARRATIVE: CASE EVENT DATE: 2020
